FAERS Safety Report 21072707 (Version 2)
Quarter: 2022Q4

REPORT INFORMATION
  Report Type: Report from Study
  Country: US (occurrence: US)
  Receive Date: 20220712
  Receipt Date: 20221011
  Transmission Date: 20230113
  Serious: Yes (Hospitalization, Other)
  Sender: FDA-Public Use
  Company Number: US-TAKEDA-US202003527

PATIENT
  Sex: Female

DRUGS (1)
  1. HUMAN IMMUNOGLOBULIN G [Suspect]
     Active Substance: HUMAN IMMUNOGLOBULIN G
     Indication: Immunodeficiency common variable
     Dosage: UNK
     Route: 058

REACTIONS (8)
  - Road traffic accident [Unknown]
  - Neck injury [Unknown]
  - Pneumonia [Unknown]
  - Nasopharyngitis [Not Recovered/Not Resolved]
  - Increased tendency to bruise [Unknown]
  - COVID-19 [Not Recovered/Not Resolved]
  - Illness [Recovering/Resolving]
  - Chronic obstructive pulmonary disease [Unknown]
